FAERS Safety Report 7303323-1 (Version None)
Quarter: 2011Q1

REPORT INFORMATION
  Report Type: 
  Country: None (occurrence: None)
  Receive Date: 20110221
  Receipt Date: 20110210
  Transmission Date: 20110831
  Serious: Yes (Hospitalization)
  Sender: FDA-Public Use
  Company Number: US-BRISTOL-MYERS SQUIBB COMPANY-15523129

PATIENT
  Age: 68 Year
  Sex: Male
  Weight: 100 kg

DRUGS (5)
  1. CISPLATIN [Suspect]
     Indication: OESOPHAGEAL ADENOCARCINOMA
     Dosage: LAST DOSE ON 11JAN2011; TOTAL DOSE FOR 6 CYCLES: 342MG.
     Dates: start: 20101207
  2. INTEGRILIN [Suspect]
  3. TAXOL [Suspect]
     Indication: OESOPHAGEAL ADENOCARCINOMA
     Dosage: LAST DOSE ON 11JAN2011; TOTAL DOSE FOR 6 CYCLES: 678MG.
     Dates: start: 20101207
  4. TISSUE PLASMINOGEN ACTIVATOR [Suspect]
  5. ERBITUX [Suspect]
     Indication: OESOPHAGEAL ADENOCARCINOMA
     Dosage: LAST DOSE ON 11JAN2011; TOTAL DOSE FOR 6 CYCLES: 3743MG.
     Dates: start: 20101207

REACTIONS (7)
  - PLATELET COUNT DECREASED [None]
  - NEUTROPHIL COUNT DECREASED [None]
  - ATRIAL FIBRILLATION [None]
  - ARTERIAL THROMBOSIS LIMB [None]
  - CYTOMEGALOVIRUS VIRAEMIA [None]
  - OESOPHAGITIS [None]
  - ANAEMIA [None]
